FAERS Safety Report 15664060 (Version 1)
Quarter: 2018Q4

REPORT INFORMATION
  Report Type: Spontaneous
  Country: US (occurrence: US)
  Receive Date: 20181116
  Receipt Date: 20181116
  Transmission Date: 20190205
  Serious: Yes (Hospitalization)
  Sender: FDA-Public Use
  Company Number: None

PATIENT
  Age: 49 Year
  Sex: Male
  Weight: 100.24 kg

DRUGS (1)
  1. HALOPERIDOL. [Suspect]
     Active Substance: HALOPERIDOL
     Indication: CYCLIC VOMITING SYNDROME
     Route: 042
     Dates: start: 20180731, end: 20180731

REACTIONS (1)
  - Dystonia [None]

NARRATIVE: CASE EVENT DATE: 20180731
